FAERS Safety Report 19324958 (Version 2)
Quarter: 2021Q3

REPORT INFORMATION
  Report Type: Spontaneous
  Country: GB (occurrence: GB)
  Receive Date: 20210528
  Receipt Date: 20210713
  Transmission Date: 20211014
  Serious: Yes (Hospitalization)
  Sender: FDA-Public Use
  Company Number: GB-ACCORD-225993

PATIENT
  Age: 56 Year
  Sex: Male

DRUGS (15)
  1. OXYCODONE [Concomitant]
     Active Substance: OXYCODONE
     Dosage: AS REQUIRED.
     Dates: start: 20201224
  2. THIAMINE. [Concomitant]
     Active Substance: THIAMINE
     Dates: start: 20201224
  3. PREGABALIN. [Concomitant]
     Active Substance: PREGABALIN
  4. TAMSULOSIN/TAMSULOSIN HYDROCHLORIDE [Concomitant]
     Active Substance: TAMSULOSIN HYDROCHLORIDE
  5. VITAMINS NOS [Concomitant]
     Active Substance: VITAMINS
     Dosage: IN THE MORNING.
     Dates: start: 20201224
  6. PRAVASTATIN. [Suspect]
     Active Substance: PRAVASTATIN
     Indication: PRODUCT USED FOR UNKNOWN INDICATION
     Dosage: AT NIGHT.
  7. ADCAL?D3 [Concomitant]
     Active Substance: CALCIUM CARBONATE\CHOLECALCIFEROL
     Dosage: 750MG/200UNIT
  8. FLUCONAZOLE. [Concomitant]
     Active Substance: FLUCONAZOLE
     Dosage: IN THE MORNING.
     Route: 048
     Dates: start: 20201224
  9. NICOTINAMIDE/RIBOFLAVIN/THIAMINE HYDROCHLORIDE [Concomitant]
     Dates: start: 20201224
  10. CIPROFLOXACIN/CIPROFLOXACIN HYDROCHLORIDE/CIPROFLOXACIN LACTATE [Suspect]
     Active Substance: CIPROFLOXACIN
     Indication: PRODUCT USED FOR UNKNOWN INDICATION
     Dosage: FOR TWO WEEKS
     Route: 048
     Dates: start: 20201224
  11. ACETYLSALICYLIC ACID [Concomitant]
     Active Substance: ASPIRIN
     Dosage: IN THE MORNING.
     Dates: start: 20201229
  12. PARACETAMOL [Concomitant]
     Active Substance: ACETAMINOPHEN
     Dosage: AS REQUIRED.
  13. METRONIDAZOLE. [Concomitant]
     Active Substance: METRONIDAZOLE
     Dosage: WITH MEALS. FOR TWO WEEKS.
     Route: 048
     Dates: start: 20201224
  14. SILDENAFIL. [Concomitant]
     Active Substance: SILDENAFIL
     Dosage: AS INSTRUCTED (MDU)
  15. LANSOPRAZOLE. [Concomitant]
     Active Substance: LANSOPRAZOLE
     Dosage: EVERY MORNING.

REACTIONS (1)
  - Pain in extremity [Unknown]
